FAERS Safety Report 5787949-2 (Version None)
Quarter: 2008Q2

REPORT INFORMATION
  Report Type: 
  Country: None (occurrence: None)
  Receive Date: 20080625
  Receipt Date: 20080620
  Transmission Date: 20081010
  Serious: Yes (Hospitalization)
  Sender: FDA-Public Use
  Company Number: B0526254A

PATIENT
  Age: 10 Day
  Sex: Female

DRUGS (3)
  1. RETROVIR [Suspect]
     Indication: ANTIVIRAL PROPHYLAXIS
     Dosage: 1.2MG PER DAY
     Route: 042
     Dates: start: 20080331, end: 20080410
  2. AMPICILLIN [Suspect]
     Dosage: 80MG PER DAY
     Route: 065
     Dates: start: 20080331, end: 20080407
  3. GENTAMICINA [Suspect]
     Dosage: 4MG PER DAY
     Route: 065
     Dates: start: 20080331, end: 20080410

REACTIONS (2)
  - HYPERTROPHIC CARDIOMYOPATHY [None]
  - VENTRICULAR HYPERTROPHY [None]
